FAERS Safety Report 9343736 (Version 1)
Quarter: 2013Q2

REPORT INFORMATION
  Report Type: Spontaneous
  Country: SE (occurrence: SE)
  Receive Date: 20130612
  Receipt Date: 20130612
  Transmission Date: 20140414
  Serious: Yes (Hospitalization)
  Sender: FDA-Public Use
  Company Number: SE-ASTRAZENECA-2013SE30693

PATIENT
  Age: 59 Year
  Sex: Male

DRUGS (2)
  1. SELOKEN ZOC [Suspect]
     Route: 048
     Dates: end: 20121207
  2. WARAN [Concomitant]

REACTIONS (5)
  - Infection [Unknown]
  - Dizziness [Unknown]
  - Bradycardia [Unknown]
  - Diarrhoea haemorrhagic [Unknown]
  - Left ventricular hypertrophy [Unknown]
